FAERS Safety Report 8816351 (Version 1)
Quarter: 2012Q4

REPORT INFORMATION
  Report Type: Spontaneous
  Country: US (occurrence: None)
  Receive Date: 20120928
  Receipt Date: 20120928
  Transmission Date: 20130627
  Serious: Yes (Hospitalization)
  Sender: FDA-Public Use
  Company Number: None

PATIENT
  Sex: Male
  Weight: 81.65 kg

DRUGS (3)
  1. ZYPREXA [Suspect]
     Indication: SCHIZOPHRENIA
     Route: 048
     Dates: start: 20120901, end: 20120913
  2. ZYPREXA [Suspect]
     Indication: SCHIZOPHRENIA
  3. ZYPREXA [Suspect]
     Route: 048

REACTIONS (1)
  - Drug ineffective [None]
